FAERS Safety Report 24609559 (Version 6)
Quarter: 2025Q1

REPORT INFORMATION
  Report Type: Spontaneous
  Country: BR (occurrence: BR)
  Receive Date: 20241112
  Receipt Date: 20250328
  Transmission Date: 20250409
  Serious: Yes (Hospitalization, Other)
  Sender: SANDOZ
  Company Number: BR-002147023-NVSC2021BR179341

PATIENT
  Age: 63 Year
  Sex: Female
  Weight: 78 kg

DRUGS (20)
  1. CLOPIDOGREL [Suspect]
     Active Substance: CLOPIDOGREL BISULFATE
     Indication: Product used for unknown indication
     Dosage: 1 DOSAGE FORM, QD
     Route: 065
  2. ROSUVASTATIN [Suspect]
     Active Substance: ROSUVASTATIN
     Indication: Product used for unknown indication
     Dosage: 1 DOSAGE FORM, QD, STRENGTH: 20 MG
     Route: 065
  3. XOLAIR [Suspect]
     Active Substance: OMALIZUMAB
     Indication: Urticaria chronic
     Route: 058
     Dates: start: 202012, end: 20210505
  4. XOLAIR [Suspect]
     Active Substance: OMALIZUMAB
     Route: 058
     Dates: start: 20210505
  5. XOLAIR [Suspect]
     Active Substance: OMALIZUMAB
     Route: 065
  6. XOLAIR [Suspect]
     Active Substance: OMALIZUMAB
     Route: 058
     Dates: start: 2020, end: 202410
  7. XOLAIR [Suspect]
     Active Substance: OMALIZUMAB
     Indication: Urticaria chronic
     Route: 065
  8. XOLAIR [Suspect]
     Active Substance: OMALIZUMAB
     Route: 065
     Dates: start: 20210604
  9. XOLAIR [Suspect]
     Active Substance: OMALIZUMAB
     Route: 065
  10. XOLAIR [Suspect]
     Active Substance: OMALIZUMAB
     Route: 065
     Dates: start: 20241204
  11. ASPIRIN [Concomitant]
     Active Substance: ASPIRIN
     Indication: Anticoagulant therapy
     Dosage: 1 DF, QD
     Route: 048
  12. ASPIRIN [Concomitant]
     Active Substance: ASPIRIN
     Dosage: 1 UNK, QD (PER DAY AFTER LUNCH)
     Route: 048
     Dates: start: 20210721
  13. EPINEPHRINE [Concomitant]
     Active Substance: EPINEPHRINE
     Indication: Product used for unknown indication
     Route: 065
  14. BILASTINE [Concomitant]
     Active Substance: BILASTINE
     Indication: Urticaria chronic
     Dosage: 1 DF, BID
     Route: 048
     Dates: start: 2020
  15. Altiva [Concomitant]
     Indication: Product used for unknown indication
     Dosage: 2 DOSAGE FORM, Q12H (180 MG) (TABLET)
     Route: 048
  16. CLOPIDOGREL BISULFATE [Concomitant]
     Active Substance: CLOPIDOGREL BISULFATE
     Indication: Product used for unknown indication
     Route: 065
  17. INDAPAMIDE [Concomitant]
     Active Substance: INDAPAMIDE
     Indication: Product used for unknown indication
     Dosage: 1 DOSAGE FORM, QD, 1 TABLET A DAY
     Route: 065
  18. NEBIVOLOL HYDROCHLORIDE [Concomitant]
     Active Substance: NEBIVOLOL HYDROCHLORIDE
     Indication: Product used for unknown indication
     Dosage: 1 DOSAGE FORM, QD,1 TABLET A DAY
     Route: 065
  19. CHLORAMPHENICOL\PREDNISOLONE [Concomitant]
     Active Substance: CHLORAMPHENICOL\PREDNISOLONE
     Indication: Product used for unknown indication
     Route: 065
  20. ROSUVASTATIN CALCIUM [Concomitant]
     Active Substance: ROSUVASTATIN CALCIUM
     Indication: Product used for unknown indication
     Route: 065

REACTIONS (21)
  - Laryngeal oedema [Unknown]
  - Transient ischaemic attack [Recovered/Resolved]
  - Laryngospasm [Unknown]
  - Low density lipoprotein abnormal [Unknown]
  - Erythema [Recovered/Resolved]
  - Blood cholesterol abnormal [Recovered/Resolved]
  - Peripheral swelling [Unknown]
  - Contusion [Unknown]
  - Burning sensation [Unknown]
  - Erythema [Unknown]
  - Swelling face [Unknown]
  - Mouth swelling [Unknown]
  - Swelling [Unknown]
  - Haematoma [Unknown]
  - Swollen tongue [Unknown]
  - Lip swelling [Unknown]
  - Pruritus [Unknown]
  - Urticaria [Unknown]
  - Urticaria [Recovered/Resolved]
  - Product availability issue [Unknown]
  - Off label use [Unknown]

NARRATIVE: CASE EVENT DATE: 20210604
